FAERS Safety Report 5398691-4 (Version None)
Quarter: 2007Q3

REPORT INFORMATION
  Report Type: 
  Country: None (occurrence: None)
  Receive Date: 20070726
  Receipt Date: 20060908
  Transmission Date: 20080115
  Serious: No
  Sender: FDA-Public Use
  Company Number: US-AMGEN-US192902

PATIENT
  Age: 59 Year
  Sex: Female
  Weight: 66 kg

DRUGS (15)
  1. EPOGEN [Suspect]
     Indication: DIALYSIS
     Route: 042
     Dates: start: 20040726
  2. HECTORAL [Concomitant]
     Route: 065
     Dates: start: 20060206
  3. VENOFER [Concomitant]
     Route: 065
     Dates: start: 20040726
  4. ZEMPLAR [Concomitant]
     Route: 065
     Dates: start: 20040726
  5. ATENOLOL [Concomitant]
     Route: 065
     Dates: start: 20060811
  6. CLONIDINE [Concomitant]
     Route: 065
     Dates: start: 20040727
  7. DEMADEX [Concomitant]
     Route: 065
     Dates: start: 20040727
  8. GLYBURIDE [Concomitant]
     Route: 065
     Dates: start: 20040727
  9. HYDRALAZINE HYDROCHLORIDE [Concomitant]
     Route: 065
     Dates: start: 20040727
  10. LISINOPRIL [Concomitant]
     Route: 065
     Dates: start: 20060113
  11. MINOXIDIL [Concomitant]
     Route: 065
     Dates: start: 20060603
  12. DEPO-PROVERA [Concomitant]
     Route: 065
     Dates: start: 20050228
  13. PREMARIN [Concomitant]
     Route: 065
     Dates: start: 20040727
  14. RENAGEL [Concomitant]
     Route: 065
     Dates: start: 20060414
  15. SODIUM BICARBONATE [Concomitant]
     Route: 065
     Dates: start: 20040727

REACTIONS (2)
  - ANAEMIA [None]
  - THERAPEUTIC RESPONSE DECREASED [None]
